FAERS Safety Report 4902067-0 (Version None)
Quarter: 2006Q1

REPORT INFORMATION
  Report Type: 
  Country: None (occurrence: None)
  Receive Date: 20060206
  Receipt Date: 20060203
  Transmission Date: 20060701
  Serious: Yes (Other)
  Sender: FDA-Public Use
  Company Number: US-GLAXOSMITHKLINE-A0592284A

PATIENT
  Age: 78 Year
  Sex: Male

DRUGS (8)
  1. REQUIP [Suspect]
     Indication: RESTLESS LEGS SYNDROME
     Route: 048
     Dates: start: 20060101
  2. LOTREL [Concomitant]
  3. HYDROCHLOROTHIAZIDE [Concomitant]
  4. ZETIA [Concomitant]
  5. K-DUR 10 [Concomitant]
  6. SYNTHROID [Concomitant]
  7. PROSCAR [Concomitant]
  8. UNKNOWN MEDICATION [Concomitant]

REACTIONS (1)
  - ATRIAL FIBRILLATION [None]
